FAERS Safety Report 11107228 (Version 1)
Quarter: 2015Q2

REPORT INFORMATION
  Report Type: Report from Study
  Country: US (occurrence: US)
  Receive Date: 20150512
  Receipt Date: 20150512
  Transmission Date: 20150821
  Serious: Yes (Other)
  Sender: FDA-Public Use
  Company Number: PHEH2014US021194

PATIENT
  Sex: Male

DRUGS (3)
  1. GLEEVEC [Suspect]
     Active Substance: IMATINIB MESYLATE
     Indication: LYMPHOMA
  2. GLEEVEC [Suspect]
     Active Substance: IMATINIB MESYLATE
     Indication: PROSTATE CANCER
     Dosage: 400 MG, QD
     Route: 048
  3. GLEEVEC [Suspect]
     Active Substance: IMATINIB MESYLATE
     Indication: CHRONIC MYELOID LEUKAEMIA

REACTIONS (4)
  - Acute sinusitis [Unknown]
  - Off label use [Unknown]
  - Dementia Alzheimer^s type [Unknown]
  - Asthenia [Unknown]
